FAERS Safety Report 16450221 (Version 1)
Quarter: 2019Q3

REPORT INFORMATION
  Report Type: Spontaneous
  Country: US (occurrence: US)
  Receive Date: 20190618
  Receipt Date: 20190618
  Transmission Date: 20191004
  Serious: Yes (Death)
  Sender: FDA-Public Use
  Company Number: None

PATIENT
  Age: 64 Year
  Sex: Female

DRUGS (4)
  1. NEULASTA [Concomitant]
     Active Substance: PEGFILGRASTIM
  2. ZARXIO [Suspect]
     Active Substance: FILGRASTIM-SNDZ
     Indication: AGRANULOCYTOSIS
     Route: 058
     Dates: start: 20190426, end: 20190531
  3. LOSARTAN. [Concomitant]
     Active Substance: LOSARTAN
  4. POT CHLORIDE CAP [Concomitant]

REACTIONS (1)
  - Death [None]

NARRATIVE: CASE EVENT DATE: 20190531
